FAERS Safety Report 20040702 (Version 1)
Quarter: 2021Q4

REPORT INFORMATION
  Report Type: Spontaneous
  Country: US (occurrence: None)
  Receive Date: 20211108
  Receipt Date: 20211108
  Transmission Date: 20220303
  Serious: Yes (Hospitalization)
  Sender: FDA-Public Use
  Company Number: None

PATIENT
  Age: 74 Year
  Sex: Male

DRUGS (12)
  1. XELODA [Suspect]
     Active Substance: CAPECITABINE
     Indication: Colorectal cancer
     Dosage: OTHER FREQUENCY : 4 BID FOR 14 DAYS;?
     Route: 048
  2. HYDROXYUREA [Concomitant]
     Active Substance: HYDROXYUREA
  3. TOPROL XL [Concomitant]
     Active Substance: METOPROLOL SUCCINATE
  4. FERROUS SULFATE [Concomitant]
     Active Substance: FERROUS SULFATE
  5. ASPIRIN [Concomitant]
     Active Substance: ASPIRIN
  6. PREVACID [Concomitant]
     Active Substance: LANSOPRAZOLE
  7. CARAFATE [Concomitant]
     Active Substance: SUCRALFATE
  8. ELIQUIS [Concomitant]
     Active Substance: APIXABAN
  9. Nu-mag [Concomitant]
  10. VITAMIN D3 [Concomitant]
     Active Substance: CHOLECALCIFEROL
  11. TIKOSYN [Concomitant]
     Active Substance: DOFETILIDE
  12. CYANOCOBALAMIN\DEXPANTHENOL\NIACINAMIDE\PYRIDOXINE HYDROCHLORIDE\RIBOF [Concomitant]
     Active Substance: CYANOCOBALAMIN\DEXPANTHENOL\NIACINAMIDE\PYRIDOXINE HYDROCHLORIDE\RIBOFLAVIN 5^-PHOSPHATE SODIUM\THIA

REACTIONS (9)
  - Palmar-plantar erythrodysaesthesia syndrome [None]
  - Fatigue [None]
  - Diarrhoea [None]
  - Nausea [None]
  - Dehydration [None]
  - Acute kidney injury [None]
  - Arrhythmia [None]
  - Anaemia [None]
  - Electrolyte imbalance [None]

NARRATIVE: CASE EVENT DATE: 20210922
